FAERS Safety Report 6206509-2 (Version None)
Quarter: 2009Q2

REPORT INFORMATION
  Report Type: 
  Country: None (occurrence: None)
  Receive Date: 20090528
  Receipt Date: 20090527
  Transmission Date: 20091009
  Serious: Yes (Hospitalization)
  Sender: FDA-Public Use
  Company Number: CN-ASTRAZENECA-2009AP03289

PATIENT
  Age: 19 Year
  Sex: Male

DRUGS (1)
  1. QUETIAPINE FUMARATE [Suspect]
     Indication: SCHIZOPHRENIA
     Route: 048

REACTIONS (5)
  - HYPOKINESIA [None]
  - INTENTIONAL OVERDOSE [None]
  - MUSCLE TWITCHING [None]
  - ORAL DISCHARGE [None]
  - URINARY INCONTINENCE [None]
